FAERS Safety Report 24525898 (Version 2)
Quarter: 2024Q4

REPORT INFORMATION
  Report Type: Spontaneous
  Country: IT (occurrence: IT)
  Receive Date: 20241020
  Receipt Date: 20241112
  Transmission Date: 20250115
  Serious: No
  Sender: BEIGENE
  Company Number: IT-BEIGENE-BGN-2024-016451

PATIENT

DRUGS (1)
  1. BRUKINSA [Suspect]
     Active Substance: ZANUBRUTINIB
     Indication: Product used for unknown indication
     Dosage: UNK
     Route: 048

REACTIONS (1)
  - No adverse event [Unknown]
